FAERS Safety Report 9786493 (Version 1)
Quarter: 2013Q4

REPORT INFORMATION
  Report Type: Spontaneous
  Country: US (occurrence: None)
  Receive Date: 20131226
  Receipt Date: 20131226
  Transmission Date: 20140711
  Serious: Yes (Other)
  Sender: FDA-Public Use
  Company Number: 001644113A

PATIENT
  Age: 19 Year
  Sex: Male

DRUGS (5)
  1. PROACTIV RENEWING CLEANSER [Suspect]
     Indication: ACNE
     Dosage: ONCE DAILY DERMAL
     Dates: start: 20131206
  2. PROACTIV REPAIRING TREATMENT [Suspect]
     Indication: ACNE
     Dosage: ONCE DAILY DERMAL
     Dates: start: 20131206
  3. PROACTIV ADVANCED DAILY OIIL CONTROL [Suspect]
     Indication: ACNE
     Dosage: ONCE DAILY DERMAL
     Dates: start: 20131206
  4. PROACTIV SPF 15 MOISTURIZER [Suspect]
     Indication: ACNE
     Dosage: ONCE DAILY DERMAL
     Dates: start: 20131206
  5. PROACTIV REFINING MASK [Suspect]
     Dosage: ONCE DAILY DERMAL
     Dates: start: 20131206

REACTIONS (4)
  - Swelling [None]
  - Pruritus [None]
  - Eye pruritus [None]
  - Blister [None]
